FAERS Safety Report 9714142 (Version 1)
Quarter: 2013Q4

REPORT INFORMATION
  Report Type: Spontaneous
  Country: US (occurrence: US)
  Receive Date: 20131126
  Receipt Date: 20131126
  Transmission Date: 20140711
  Serious: No
  Sender: FDA-Public Use
  Company Number: US-GILEAD-2008-0019047

PATIENT
  Sex: Female
  Weight: 60.33 kg

DRUGS (4)
  1. LETAIRIS [Suspect]
     Indication: PULMONARY ARTERIAL HYPERTENSION
     Route: 048
     Dates: start: 20081015
  2. OXYGEN [Concomitant]
  3. BUMEX [Concomitant]
  4. VICODIN [Concomitant]

REACTIONS (1)
  - Oedema peripheral [None]
